FAERS Safety Report 9546873 (Version 1)
Quarter: 2013Q2

REPORT INFORMATION
  Report Type: Spontaneous
  Country: US (occurrence: None)
  Receive Date: 20130524
  Receipt Date: 20130524
  Transmission Date: 20140414
  Serious: No
  Sender: FDA-Public Use
  Company Number: PHEH2012US024768

PATIENT
  Age: 33 Year
  Sex: Female
  Weight: 56.7 kg

DRUGS (1)
  1. GILENYA (FINGOLIMOD) CAPSULE, 0.5MG [Suspect]
     Indication: MULTIPLE SCLEROSIS
     Route: 048
     Dates: start: 20120919, end: 20121201

REACTIONS (4)
  - Eating disorder [None]
  - Malaise [None]
  - Weight decreased [None]
  - Drug ineffective [None]
